FAERS Safety Report 9425987 (Version 1)
Quarter: 2013Q3

REPORT INFORMATION
  Report Type: Spontaneous
  Country: US (occurrence: US)
  Receive Date: 20130730
  Receipt Date: 20130730
  Transmission Date: 20140515
  Serious: Yes (Other)
  Sender: FDA-Public Use
  Company Number: US-PFIZER INC-2013216164

PATIENT
  Age: 57 Year
  Sex: Female

DRUGS (2)
  1. XELJANZ [Suspect]
     Indication: RHEUMATOID ARTHRITIS
     Dosage: 5 MG, 2X/DAY
     Dates: start: 201301
  2. PRILOSEC [Concomitant]

REACTIONS (5)
  - Rheumatoid arthritis [Recovering/Resolving]
  - Abasia [Recovering/Resolving]
  - Hepatic enzyme increased [Unknown]
  - Blood cholesterol increased [Unknown]
  - Limb discomfort [Unknown]
